FAERS Safety Report 9000788 (Version 1)
Quarter: 2013Q1

REPORT INFORMATION
  Report Type: Spontaneous
  Country: US (occurrence: None)
  Receive Date: 20130103
  Receipt Date: 20130103
  Transmission Date: 20140127
  Serious: Yes (Life-Threatening)
  Sender: FDA-Public Use
  Company Number: None

PATIENT
  Age: 50 Year
  Sex: Female
  Weight: 51.71 kg

DRUGS (1)
  1. DEPO PROVERA [Suspect]
     Dates: start: 201207

REACTIONS (1)
  - Menorrhagia [None]
